FAERS Safety Report 14656038 (Version 2)
Quarter: 2019Q1

REPORT INFORMATION
  Report Type: Report from Study
  Country: US (occurrence: US)
  Receive Date: 20180319
  Receipt Date: 20190314
  Transmission Date: 20190417
  Serious: No
  Sender: FDA-Public Use
  Company Number: PHEH2018US010643

PATIENT
  Age: 26 Year
  Sex: Female

DRUGS (2)
  1. GLATOPA [Suspect]
     Active Substance: GLATIRAMER ACETATE
     Indication: MULTIPLE SCLEROSIS
     Dosage: 20 MG, DAILY (ROTATES SITES)
     Route: 058
     Dates: start: 20171201
  2. GLATOPA [Suspect]
     Active Substance: GLATIRAMER ACETATE
     Dosage: 40 MG, DAILY
     Route: 058
     Dates: start: 201805

REACTIONS (6)
  - Abdominal pain upper [Not Recovered/Not Resolved]
  - Feeling hot [Recovering/Resolving]
  - Heart rate increased [Recovering/Resolving]
  - Injection site haemorrhage [Recovering/Resolving]
  - Dizziness [Recovering/Resolving]
  - Scar [Unknown]

NARRATIVE: CASE EVENT DATE: 20180306
